FAERS Safety Report 9336534 (Version 2)
Quarter: 2013Q2

REPORT INFORMATION
  Report Type: Spontaneous
  Country: US (occurrence: US)
  Receive Date: 20130607
  Receipt Date: 20130628
  Transmission Date: 20140414
  Serious: No
  Sender: FDA-Public Use
  Company Number: US-PFIZER INC-2013170538

PATIENT
  Age: 74 Year
  Sex: Male

DRUGS (6)
  1. BOSULIF [Suspect]
     Dosage: 500 MG, DAILY
     Route: 048
     Dates: start: 20130602
  2. ZIAC [Concomitant]
     Dosage: UNK
  3. NASONEX [Concomitant]
     Dosage: UNK
  4. ADVAIR [Concomitant]
     Dosage: UNK
  5. ACETYLSALICYLIC ACID [Concomitant]
     Dosage: UNK
  6. CALCIUM [Concomitant]
     Dosage: UNK

REACTIONS (1)
  - Diarrhoea [Unknown]
